FAERS Safety Report 21114727 (Version 1)
Quarter: 2022Q3

REPORT INFORMATION
  Report Type: Spontaneous
  Country: CA (occurrence: CA)
  Receive Date: 20220721
  Receipt Date: 20220721
  Transmission Date: 20221027
  Serious: Yes (Other)
  Sender: FDA-Public Use
  Company Number: CA-PFIZER INC-202200990332

PATIENT
  Age: 76 Year
  Sex: Female

DRUGS (9)
  1. METHOTREXATE SODIUM [Suspect]
     Active Substance: METHOTREXATE SODIUM
     Dosage: 1 DF
     Dates: start: 2012, end: 2018
  2. ARAVA [Concomitant]
     Active Substance: LEFLUNOMIDE
     Dosage: 20 MG
     Dates: start: 2018
  3. HYDROXYCHLOROQUINE [Concomitant]
     Active Substance: HYDROXYCHLOROQUINE
     Dosage: 200 MG, Q MWF
  4. CANDESARTAN [Concomitant]
     Active Substance: CANDESARTAN
     Dosage: 16 MG, 1X/DAY
  5. RABEPRAZOLE [Concomitant]
     Active Substance: RABEPRAZOLE
     Dosage: 10 MG
  6. FUROSEMIDE [Concomitant]
     Active Substance: FUROSEMIDE
     Dosage: 20 MG, Q MWF
  7. ASPIRIN [Concomitant]
     Active Substance: ASPIRIN
     Dosage: 81 MG, 1X/DAY
  8. METOPROLOL [Concomitant]
     Active Substance: METOPROLOL
     Dosage: 50 MG, 1X/DAY
  9. LIPITOR [Concomitant]
     Active Substance: ATORVASTATIN CALCIUM
     Dosage: 10 MG, 1X/DAY

REACTIONS (2)
  - Rheumatoid arthritis [Unknown]
  - Drug ineffective [Unknown]
